FAERS Safety Report 5058289-4 (Version None)
Quarter: 2006Q2

REPORT INFORMATION
  Report Type: 
  Country: None (occurrence: None)
  Receive Date: 20060627
  Receipt Date: 20060222
  Transmission Date: 20061013
  Serious: Yes (Hospitalization)
  Sender: FDA-Public Use
  Company Number: R-3R1091

PATIENT
  Age: 72 Year
  Sex: Male
  Weight: 92.5338 kg

DRUGS (3)
  1. VISTARIL [Suspect]
     Indication: ILL-DEFINED DISORDER
     Dosage: 100 MG, INTRAMUSCULAR
     Route: 030
     Dates: start: 19901021, end: 19901022
  2. DEMEROL [Concomitant]
  3. B+O SUPPOSITORY (BELLADONNA EXTRACT, OPIUM) [Concomitant]

REACTIONS (2)
  - INJECTION SITE NECROSIS [None]
  - INJECTION SITE PAIN [None]
